FAERS Safety Report 5228696-5 (Version None)
Quarter: 2007Q1

REPORT INFORMATION
  Report Type: 
  Country: None (occurrence: None)
  Receive Date: 20070205
  Receipt Date: 20070119
  Transmission Date: 20070707
  Serious: Yes (Other)
  Sender: FDA-Public Use
  Company Number: AT-PURDUE-DEU_2007_0002906

PATIENT
  Age: 20 Year
  Sex: Male

DRUGS (5)
  1. SUBSTITOL RETARD KAPSELN [Suspect]
     Indication: DRUG WITHDRAWAL MAINTENANCE THERAPY
     Route: 048
  2. AMPHETAMINE [Suspect]
     Indication: DRUG ABUSER
     Route: 048
  3. HYPNOTICS AND SEDATIVES [Suspect]
     Indication: DRUG ABUSER
     Route: 048
  4. CANNABIS [Suspect]
     Indication: DRUG ABUSER
     Route: 048
  5. COCAINE [Suspect]
     Indication: DRUG ABUSER
     Route: 048

REACTIONS (7)
  - BALANCE DISORDER [None]
  - DEPRESSED LEVEL OF CONSCIOUSNESS [None]
  - DISTURBANCE IN ATTENTION [None]
  - INSOMNIA [None]
  - ROAD TRAFFIC ACCIDENT [None]
  - SUBSTANCE ABUSE [None]
  - TREMOR [None]
